FAERS Safety Report 9796671 (Version 2)
Quarter: 2014Q1

REPORT INFORMATION
  Report Type: Report from Study
  Country: US (occurrence: US)
  Receive Date: 20140103
  Receipt Date: 20140103
  Transmission Date: 20141002
  Serious: Yes (Other)
  Sender: FDA-Public Use
  Company Number: US-PFIZER INC-2013359868

PATIENT
  Sex: 0

DRUGS (2)
  1. ADVIL [Suspect]
     Indication: MYALGIA
     Dosage: 400 MG, 3X/DAY
  2. THERMACARE HEATWRAP [Suspect]
     Indication: MYALGIA

REACTIONS (1)
  - Rhabdomyolysis [Recovering/Resolving]
